FAERS Safety Report 24026333 (Version 3)
Quarter: 2024Q3

REPORT INFORMATION
  Report Type: Report from Study
  Country: CN (occurrence: CN)
  Receive Date: 20240628
  Receipt Date: 20240710
  Transmission Date: 20241017
  Serious: No
  Sender: ROCHE
  Company Number: CN-ROCHE-3354021

PATIENT
  Age: 61 Year
  Sex: Female

DRUGS (9)
  1. ALECTINIB [Suspect]
     Active Substance: ALECTINIB
     Indication: Lung cancer metastatic
     Route: 048
     Dates: start: 20221118
  2. ADEMETIONINE BUTANEDISULFONATE [Concomitant]
     Active Substance: ADEMETIONINE BUTANEDISULFONATE
     Indication: Hyperbilirubinaemia
     Route: 048
     Dates: start: 20230915, end: 20230924
  3. PROMETHAZINE HYDROCHLORIDE [Concomitant]
     Active Substance: PROMETHAZINE HYDROCHLORIDE
     Indication: Dizziness
     Route: 030
     Dates: start: 20240310, end: 20240310
  4. PROMETHAZINE HYDROCHLORIDE [Concomitant]
     Active Substance: PROMETHAZINE HYDROCHLORIDE
     Indication: Nausea
  5. PROMETHAZINE HYDROCHLORIDE [Concomitant]
     Active Substance: PROMETHAZINE HYDROCHLORIDE
     Indication: Vomiting
  6. ILAPRAZOLE [Concomitant]
     Active Substance: ILAPRAZOLE
     Route: 042
     Dates: start: 20240310, end: 20240310
  7. PANTOPRAZOLE SODIUM [Concomitant]
     Active Substance: PANTOPRAZOLE SODIUM
     Dosage: STOMACH PROTECTION
     Route: 042
     Dates: start: 20240311, end: 20240315
  8. BETAHISTINE HYDROCHLORIDE [Concomitant]
     Active Substance: BETAHISTINE HYDROCHLORIDE
     Dosage: CURE DIZZINESS
     Route: 042
     Dates: start: 20240312, end: 20240316
  9. BATROXOBIN [Concomitant]
     Active Substance: BATROXOBIN
     Dosage: ANTICOAGULATION
     Route: 042
     Dates: start: 20240312, end: 20240312

REACTIONS (1)
  - Constipation [Not Recovered/Not Resolved]

NARRATIVE: CASE EVENT DATE: 20230301
